FAERS Safety Report 23585586 (Version 1)
Quarter: 2024Q1

REPORT INFORMATION
  Report Type: Spontaneous
  Country: US (occurrence: None)
  Receive Date: 20240229
  Receipt Date: 20240229
  Transmission Date: 20240409
  Serious: Yes (Hospitalization)
  Sender: FDA-Public Use
  Company Number: None

PATIENT
  Age: 90 Year
  Sex: Female

DRUGS (1)
  1. LENALIDOMIDE [Suspect]
     Active Substance: LENALIDOMIDE
     Indication: Diffuse large B-cell lymphoma
     Dosage: 20MG QD ORAL?
     Route: 048
     Dates: start: 20240130

REACTIONS (2)
  - Atrial flutter [None]
  - Infusion related reaction [None]

NARRATIVE: CASE EVENT DATE: 20240205
